FAERS Safety Report 10515128 (Version 1)
Quarter: 2014Q4

REPORT INFORMATION
  Report Type: Spontaneous
  Country: DE (occurrence: DE)
  Receive Date: 20141014
  Receipt Date: 20141014
  Transmission Date: 20150528
  Serious: Yes (Other)
  Sender: FDA-Public Use
  Company Number: DE-JNJFOC-20141006957

PATIENT
  Sex: Female

DRUGS (3)
  1. REGAINE UNSPECIFIED [Suspect]
     Active Substance: MINOXIDIL
     Indication: PRODUCT USED FOR UNKNOWN INDICATION
     Route: 061
     Dates: start: 2004, end: 2010
  2. REGAINE UNSPECIFIED [Suspect]
     Active Substance: MINOXIDIL
     Route: 061
  3. MINOXIDIL. [Suspect]
     Active Substance: MINOXIDIL
     Indication: PRODUCT USED FOR UNKNOWN INDICATION
     Dosage: 3%
     Route: 065

REACTIONS (2)
  - Vasculitis [Unknown]
  - Polyneuropathy [Unknown]
